FAERS Safety Report 7548145-1 (Version None)
Quarter: 2011Q2

REPORT INFORMATION
  Report Type: 
  Country: None (occurrence: None)
  Receive Date: 20110524
  Receipt Date: 20110127
  Transmission Date: 20111010
  Serious: No
  Sender: FDA-Public Use
  Company Number: 026445

PATIENT
  Sex: Male
  Weight: 79.3795 kg

DRUGS (5)
  1. GALENIC/CALCIUM/VITAMIN D [Concomitant]
  2. VITAMIN B-12 [Concomitant]
  3. CIMZIA [Suspect]
     Indication: CROHN'S DISEASE
     Dosage: 2 SHOTS SUBCUTANEOUS, 2 SHOTS SUBCUTANEOUS
     Route: 058
     Dates: start: 20101101
  4. CIMZIA [Suspect]
     Indication: CROHN'S DISEASE
     Dosage: 2 SHOTS SUBCUTANEOUS, 2 SHOTS SUBCUTANEOUS
     Route: 058
     Dates: start: 20100501
  5. FERROUS SULFATE TAB [Concomitant]

REACTIONS (7)
  - GASTROINTESTINAL PAIN [None]
  - ARTHRALGIA [None]
  - GINGIVAL PAIN [None]
  - HYPOAESTHESIA [None]
  - DRUG INEFFECTIVE [None]
  - PRURITUS [None]
  - FREQUENT BOWEL MOVEMENTS [None]
